FAERS Safety Report 8022845-1 (Version None)
Quarter: 2012Q1

REPORT INFORMATION
  Report Type: 
  Country: None (occurrence: None)
  Receive Date: 20120104
  Receipt Date: 20111230
  Transmission Date: 20120608
  Serious: Yes (Other)
  Sender: FDA-Public Use
  Company Number: DZ-ROCHE-1021083

PATIENT
  Sex: Male

DRUGS (1)
  1. PEGASYS [Suspect]
     Indication: HEPATITIS B
     Route: 058

REACTIONS (5)
  - AFFECTIVE DISORDER [None]
  - ASTHENIA [None]
  - HEADACHE [None]
  - DEPRESSED MOOD [None]
  - SYNCOPE [None]
